FAERS Safety Report 16755429 (Version 1)
Quarter: 2019Q3

REPORT INFORMATION
  Report Type: Spontaneous
  Country: US (occurrence: US)
  Receive Date: 20190711
  Receipt Date: 20190711
  Transmission Date: 20191005
  Serious: Yes (Other)
  Sender: FDA-Public Use
  Company Number: None

PATIENT
  Age: 64 Year
  Sex: Male
  Weight: 72.12 kg

DRUGS (1)
  1. ALBUTEROL HFA 90MCG 90 MCG INH [Suspect]
     Active Substance: ALBUTEROL SULFATE
     Dosage: ?          OTHER DOSE:2 PUFFS;?
     Route: 055
     Dates: start: 20190424, end: 20190710

REACTIONS (3)
  - Drug ineffective [None]
  - Product substitution issue [None]
  - Condition aggravated [None]

NARRATIVE: CASE EVENT DATE: 20190606
